FAERS Safety Report 19771280 (Version 2)
Quarter: 2021Q3

REPORT INFORMATION
  Report Type: Other
  Country: US (occurrence: US)
  Receive Date: 20210901
  Receipt Date: 20210908
  Transmission Date: 20211014
  Serious: Yes (Other)
  Sender: FDA-Public Use
  Company Number: US-ROCHE-2898468

PATIENT
  Sex: Female

DRUGS (9)
  1. XOLAIR [Suspect]
     Active Substance: OMALIZUMAB
  2. XOLAIR [Suspect]
     Active Substance: OMALIZUMAB
     Indication: ASTHMA
     Dosage: INJECT 225MG SUBCUTANEOUSLY EVERY 14 DAY(S)
     Route: 058
  3. XOLAIR [Suspect]
     Active Substance: OMALIZUMAB
  4. XOLAIR [Suspect]
     Active Substance: OMALIZUMAB
  5. XOLAIR [Suspect]
     Active Substance: OMALIZUMAB
  6. XOLAIR [Suspect]
     Active Substance: OMALIZUMAB
  7. XOLAIR [Suspect]
     Active Substance: OMALIZUMAB
     Indication: INTERVERTEBRAL DISC DEGENERATION
  8. XOLAIR [Suspect]
     Active Substance: OMALIZUMAB
     Indication: LUMBAR RADICULOPATHY
     Dosage: INJECT 225MG SUBCUTANEOUSLY EVERY 14 DAY(S)
     Route: 058
  9. XOLAIR [Suspect]
     Active Substance: OMALIZUMAB

REACTIONS (1)
  - Systemic lupus erythematosus [Unknown]
